FAERS Safety Report 15610751 (Version 1)
Quarter: 2018Q4

REPORT INFORMATION
  Report Type: Spontaneous
  Country: US (occurrence: US)
  Receive Date: 20181113
  Receipt Date: 20181113
  Transmission Date: 20190205
  Serious: No
  Sender: FDA-Public Use
  Company Number: US-ROCHE-2166548

PATIENT

DRUGS (2)
  1. HERCEPTIN [Suspect]
     Active Substance: TRASTUZUMAB
     Indication: COLORECTAL CANCER
     Dosage: EVERY 2 WEEKS
     Route: 065
  2. PERJETA [Suspect]
     Active Substance: PERTUZUMAB
     Indication: COLORECTAL CANCER
     Dosage: EVERY 2 WEEKS
     Route: 065

REACTIONS (3)
  - Alopecia [Unknown]
  - Intentional product use issue [Unknown]
  - Off label use [Unknown]
